FAERS Safety Report 7389550-6 (Version None)
Quarter: 2011Q2

REPORT INFORMATION
  Report Type: 
  Country: None (occurrence: None)
  Receive Date: 20110401
  Receipt Date: 20110318
  Transmission Date: 20111010
  Serious: Yes (Hospitalization)
  Sender: FDA-Public Use
  Company Number: PHHO2011AT02028

PATIENT
  Sex: Female
  Weight: 58 kg

DRUGS (16)
  1. LETROZOLE [Suspect]
     Indication: BREAST CANCER
     Dosage: 2.5 MG, QD
     Route: 048
     Dates: start: 20061229
  2. NICORETTE [Concomitant]
  3. TRAMAL [Concomitant]
  4. PANTOLOC [Concomitant]
  5. ATORVASTATIN CALCIUM [Concomitant]
     Indication: HYPERLIPIDAEMIA
  6. BALDRIAN [Concomitant]
  7. PASSEDAN [Concomitant]
  8. EBRANTIL [Concomitant]
  9. MEXALEN [Concomitant]
  10. FRAGMIN [Concomitant]
  11. ASPIRIN [Concomitant]
  12. TEMESTA [Concomitant]
  13. PANTOPRAZOLE [Concomitant]
  14. MAXI-KALZ [Concomitant]
  15. PREDNISOLONE [Concomitant]
  16. CITALOPRAM HYDROBROMIDE [Concomitant]

REACTIONS (8)
  - POLYARTHRITIS [None]
  - EXTREMITY NECROSIS [None]
  - SPLINT APPLICATION [None]
  - GANGRENE [None]
  - FINGER AMPUTATION [None]
  - CAROTID ARTERY STENOSIS [None]
  - ARTERIAL THERAPEUTIC PROCEDURE [None]
  - CONCOMITANT DISEASE PROGRESSION [None]
